FAERS Safety Report 16952428 (Version 1)
Quarter: 2019Q4

REPORT INFORMATION
  Report Type: Spontaneous
  Country: US (occurrence: US)
  Receive Date: 20191023
  Receipt Date: 20191023
  Transmission Date: 20200122
  Serious: No
  Sender: FDA-Public Use
  Company Number: US-IBSA PHARMA-TIR-2019-0543

PATIENT
  Sex: Female

DRUGS (1)
  1. TIROSINT [Suspect]
     Active Substance: LEVOTHYROXINE SODIUM
     Indication: PRODUCT USED FOR UNKNOWN INDICATION
     Dosage: 13MCG ONCE
     Route: 048
     Dates: start: 20190521, end: 20190521

REACTIONS (2)
  - Tongue pruritus [Unknown]
  - Oral pruritus [Unknown]

NARRATIVE: CASE EVENT DATE: 20190521
